FAERS Safety Report 18644585 (Version 1)
Quarter: 2020Q4

REPORT INFORMATION
  Report Type: Spontaneous
  Country: US (occurrence: US)
  Receive Date: 20201221
  Receipt Date: 20201221
  Transmission Date: 20210114
  Serious: No
  Sender: FDA-Public Use
  Company Number: US-BIOHAVEN PHARMACEUTICALS-2020BHV00600

PATIENT
  Sex: Female
  Weight: 52.61 kg

DRUGS (2)
  1. NURTEC ODT [Suspect]
     Active Substance: RIMEGEPANT SULFATE
     Indication: MIGRAINE
     Dosage: 75 MG, ONCE WHEN MIGRAINE WAS BEGINNING TO BUILD
     Route: 060
     Dates: start: 2020
  2. UNSPECIFIED MIGRAINE MEDS [Concomitant]

REACTIONS (2)
  - Migraine [Recovered/Resolved]
  - Drug ineffective [Recovered/Resolved]

NARRATIVE: CASE EVENT DATE: 2020
